FAERS Safety Report 21833570 (Version 2)
Quarter: 2023Q1

REPORT INFORMATION
  Report Type: Spontaneous
  Country: ES (occurrence: ES)
  Receive Date: 20230107
  Receipt Date: 20230111
  Transmission Date: 20230418
  Serious: Yes (Other)
  Sender: FDA-Public Use
  Company Number: ES-AEMPS-1312251

PATIENT
  Age: 38 Year
  Sex: Female

DRUGS (5)
  1. AMOXICILLIN [Suspect]
     Active Substance: AMOXICILLIN
     Indication: Tooth infection
     Dosage: 500 MILLIGRAM, 3 TIMES A DAY
     Route: 048
     Dates: start: 20221202, end: 20221206
  2. IBUPROFEN [Suspect]
     Active Substance: IBUPROFEN
     Indication: Tooth infection
     Dosage: UNK
     Route: 048
     Dates: start: 20221202, end: 20221206
  3. METAMIZOLE SODIUM [Suspect]
     Active Substance: METAMIZOLE SODIUM
     Indication: Tooth infection
     Dosage: 10 DOSAGE FORM
     Route: 048
     Dates: start: 20221202, end: 20221206
  4. METAMIZOLE\PROPOXYPHENE [Suspect]
     Active Substance: METAMIZOLE\PROPOXYPHENE
     Indication: Tooth infection
     Dosage: UNK
     Route: 048
     Dates: start: 20221202, end: 20221206
  5. CYANOCOBALAMIN\FOLIC ACID\POTASSIUM IODIDE [Concomitant]
     Active Substance: CYANOCOBALAMIN\FOLIC ACID\POTASSIUM IODIDE
     Indication: Product used for unknown indication
     Dosage: 1 DOSAGE FORM, ONCE A DAY
     Route: 048
     Dates: start: 20220216

REACTIONS (3)
  - Lip oedema [Recovered/Resolved]
  - Urticaria [Recovered/Resolved]
  - Tongue oedema [Recovered/Resolved]

NARRATIVE: CASE EVENT DATE: 20221206
